FAERS Safety Report 10469783 (Version 1)
Quarter: 2014Q3

REPORT INFORMATION
  Report Type: Spontaneous
  Country: US (occurrence: None)
  Receive Date: 20140905
  Receipt Date: 20140905
  Transmission Date: 20150326
  Serious: Yes (Life-Threatening, Hospitalization)
  Sender: FDA-Public Use
  Company Number: 2014ZX000056

PATIENT
  Age: 59 Year
  Sex: Female
  Weight: 62.6 kg

DRUGS (4)
  1. ATORVASTATIN [Concomitant]
     Active Substance: ATORVASTATIN
  2. ASPIRIN. [Concomitant]
     Active Substance: ASPIRIN
  3. SUMAVEL DOSEPRO [Suspect]
     Active Substance: SUMATRIPTAN SUCCINATE
     Indication: MIGRAINE
     Route: 058
     Dates: start: 2012
  4. DEXILANT [Concomitant]
     Active Substance: DEXLANSOPRAZOLE

REACTIONS (7)
  - Cerebrovascular accident [None]
  - Speech disorder [None]
  - Cataract operation [None]
  - Drug effect incomplete [None]
  - Headache [None]
  - Blood pressure increased [None]
  - Cataract [None]

NARRATIVE: CASE EVENT DATE: 201309
